FAERS Safety Report 6555183-4 (Version None)
Quarter: 2010Q1

REPORT INFORMATION
  Report Type: 
  Country: None (occurrence: None)
  Receive Date: 20100128
  Receipt Date: 20100118
  Transmission Date: 20100710
  Serious: Yes (Hospitalization)
  Sender: FDA-Public Use
  Company Number: US-AMGEN-QUU360731

PATIENT
  Sex: Female

DRUGS (7)
  1. ENBREL [Suspect]
     Indication: ANKYLOSING SPONDYLITIS
     Route: 058
     Dates: start: 19990629
  2. PLAQUENIL [Concomitant]
     Route: 048
     Dates: start: 20090817
  3. ZITHROMAX [Concomitant]
  4. ADVAIR HFA [Concomitant]
  5. ZOCOR [Concomitant]
  6. UNSPECIFIED MEDICATION [Concomitant]
  7. CYMBALTA [Concomitant]

REACTIONS (7)
  - BACK DISORDER [None]
  - INDURATION [None]
  - INFLUENZA LIKE ILLNESS [None]
  - OSTEOARTHRITIS [None]
  - PALLOR [None]
  - RASH [None]
  - THERAPEUTIC RESPONSE DECREASED [None]
